FAERS Safety Report 4397927-6 (Version None)
Quarter: 2004Q3

REPORT INFORMATION
  Report Type: 
  Country: None (occurrence: None)
  Receive Date: 20040713
  Receipt Date: 20040630
  Transmission Date: 20050211
  Serious: Yes (Hospitalization)
  Sender: FDA-Public Use
  Company Number: US-JNJFOC-20040701296

PATIENT
  Age: 49 Year
  Sex: Female

DRUGS (4)
  1. DURAGESIC [Suspect]
     Indication: BACK PAIN
     Dosage: 75 UG/HR, 1 IN 72 HOUR, TRANSDERMAL
     Route: 062
     Dates: start: 20040601, end: 20040620
  2. DURAGESIC [Suspect]
     Indication: NEURALGIA
     Dosage: 75 UG/HR, 1 IN 72 HOUR, TRANSDERMAL
     Route: 062
     Dates: start: 20040601, end: 20040620
  3. DURAGESIC [Suspect]
  4. MORPHINE [Concomitant]

REACTIONS (3)
  - APPLICATION SITE DERMATITIS [None]
  - CELLULITIS [None]
  - NEURALGIA [None]
